FAERS Safety Report 24624337 (Version 1)
Quarter: 2024Q4

REPORT INFORMATION
  Report Type: Spontaneous
  Country: US (occurrence: None)
  Receive Date: 20241114
  Receipt Date: 20241114
  Transmission Date: 20250114
  Serious: No
  Sender: Public
  Company Number: None

PATIENT
  Sex: Male

DRUGS (8)
  1. SPRAVATO [Suspect]
     Active Substance: ESKETAMINE
     Indication: Major depression
     Dosage: FREQUENCY : WEEKLY;?
     Route: 045
     Dates: start: 202310
  2. TOBRAMYCIN [Concomitant]
     Active Substance: TOBRAMYCIN\TOBRAMYCIN SULFATE
  3. STERILE WATER [Concomitant]
     Active Substance: WATER
  4. COLISTIMETHATE SOD [Concomitant]
  5. EVEROLIMUS [Concomitant]
     Active Substance: EVEROLIMUS
  6. MYCOPHENOLATE MOFETIL [Concomitant]
     Active Substance: MYCOPHENOLATE MOFETIL
  7. TACROLIMUS (BIOCON) [Concomitant]
  8. CAYSTON [Concomitant]
     Active Substance: AZTREONAM

REACTIONS (1)
  - Depression [None]
